FAERS Safety Report 4486428-2 (Version None)
Quarter: 2004Q4

REPORT INFORMATION
  Report Type: 
  Country: None (occurrence: None)
  Receive Date: 20041026
  Receipt Date: 20041026
  Transmission Date: 20050328
  Serious: Yes (Hospitalization)
  Sender: FDA-Public Use
  Company Number: None

PATIENT
  Age: 44 Year
  Sex: Female
  Weight: 59.3 kg

DRUGS (2)
  1. TAXOTERE [Suspect]
     Indication: MALIGNANT MELANOMA
     Dosage: 25 MG/M2  WEEKLY  3 OF 4 WEEKS
     Dates: start: 20040503, end: 20041007
  2. TEMOZOLOMIDE [Suspect]
     Indication: MALIGNANT MELANOMA
     Dosage: 160 MG PO 21 DAYS
     Route: 048
     Dates: start: 20040504, end: 20041011

REACTIONS (5)
  - ABDOMINAL DISTENSION [None]
  - ASCITES [None]
  - DISEASE PROGRESSION [None]
  - METASTASES TO LIVER [None]
  - PERITONEAL CARCINOMA [None]
